FAERS Safety Report 14560071 (Version 1)
Quarter: 2018Q1

REPORT INFORMATION
  Report Type: Spontaneous
  Country: US (occurrence: US)
  Receive Date: 20180221
  Receipt Date: 20180221
  Transmission Date: 20180509
  Serious: No
  Sender: FDA-Public Use
  Company Number: US-ASTRAZENECA-2018SE21489

PATIENT
  Age: 55 Year
  Sex: Female
  Weight: 72.1 kg

DRUGS (5)
  1. NEXIUM 24HR [Suspect]
     Active Substance: ESOMEPRAZOLE MAGNESIUM
     Indication: ABDOMINAL PAIN UPPER
     Dosage: UNK
     Route: 048
  2. ZENTEL [Suspect]
     Active Substance: ALBENDAZOLE
     Indication: ABDOMINAL PAIN UPPER
     Dosage: UNK
     Route: 065
  3. ZOFRAN [Suspect]
     Active Substance: ONDANSETRON HYDROCHLORIDE
     Indication: ABDOMINAL PAIN UPPER
     Dosage: UNK
     Route: 065
  4. ZANTAC [Suspect]
     Active Substance: RANITIDINE HYDROCHLORIDE
     Indication: ABDOMINAL PAIN UPPER
     Dosage: UNK
     Route: 065
  5. MYLANTA [Suspect]
     Active Substance: ALUMINUM HYDROXIDE\DIMETHICONE\MAGNESIUM HYDROXIDE
     Indication: ABDOMINAL PAIN UPPER
     Dosage: UNK
     Route: 065

REACTIONS (4)
  - Eating disorder symptom [Not Recovered/Not Resolved]
  - Nausea [Recovering/Resolving]
  - Drug ineffective [Unknown]
  - Weight decreased [Not Recovered/Not Resolved]

NARRATIVE: CASE EVENT DATE: 20171212
